FAERS Safety Report 8519782-2 (Version None)
Quarter: 2012Q3

REPORT INFORMATION
  Report Type: 
  Country: None (occurrence: None)
  Receive Date: 20120719
  Receipt Date: 20120709
  Transmission Date: 20120928
  Serious: No
  Sender: FDA-Public Use
  Company Number: US-BIOGENIDEC-2012BI024168

PATIENT
  Sex: Female

DRUGS (2)
  1. TYSABRI [Suspect]
     Indication: MULTIPLE SCLEROSIS
     Route: 042
     Dates: start: 20090105
  2. ANESTHESIA [Concomitant]
     Indication: DRUG DELIVERY DEVICE REMOVAL

REACTIONS (6)
  - ANAESTHETIC COMPLICATION [None]
  - PAIN [None]
  - NAUSEA [None]
  - DRUG DELIVERY DEVICE REMOVAL [None]
  - FIBROMYALGIA [None]
  - VOMITING [None]
